FAERS Safety Report 8155439-8 (Version None)
Quarter: 2012Q1

REPORT INFORMATION
  Report Type: 
  Country: None (occurrence: None)
  Receive Date: 20120202
  Receipt Date: 20120125
  Transmission Date: 20120608
  Serious: Yes (Other)
  Sender: FDA-Public Use
  Company Number: CA-145266

PATIENT
  Sex: Male
  Weight: 86 kg

DRUGS (9)
  1. TRANEXAMIC ACID [Concomitant]
  2. FUROSEMIDE [Concomitant]
  3. TRANEXAMIC ACID [Concomitant]
  4. WINRHO SDF LIQUID [Suspect]
  5. CYCLOMEN [Concomitant]
  6. NADOLOL [Concomitant]
  7. PIPERACILLIN AND TAZOBACTAM [Concomitant]
  8. WINRHO SDF LIQUID [Suspect]
     Indication: AUTOIMMUNE THROMBOCYTOPENIA
     Dosage: (75 UG/KG TOTAL INTRAVENOUS (NOT OTHERWISE SPECIFIED)), (INTRAVENOUS (NOT OTHERWISE SPECIFIED)
     Route: 042
     Dates: start: 20110528, end: 20110528
  9. ACETAMINOPHEN [Concomitant]

REACTIONS (2)
  - HAEMOLYTIC ANAEMIA [None]
  - ANTI-ERYTHROCYTE ANTIBODY POSITIVE [None]
